FAERS Safety Report 10947812 (Version 1)
Quarter: 2015Q1

REPORT INFORMATION
  Report Type: Spontaneous
  Country: US (occurrence: US)
  Receive Date: 20150324
  Receipt Date: 20150324
  Transmission Date: 20150721
  Serious: No
  Sender: FDA-Public Use
  Company Number: US-SUN PHARMACEUTICAL INDUSTRIES LTD-2014SUN01108

PATIENT

DRUGS (7)
  1. TAMSULOSIN [Concomitant]
     Active Substance: TAMSULOSIN
  2. AMLODIPINE [Concomitant]
     Active Substance: AMLODIPINE BESYLATE
  3. ASPIRIN. [Concomitant]
     Active Substance: ASPIRIN
  4. CARISOPRODOL TABS 350MG [Suspect]
     Active Substance: CARISOPRODOL
     Dosage: 350 MG, TID
     Route: 065
     Dates: start: 20140506, end: 20140508
  5. LISINOPRIL. [Concomitant]
     Active Substance: LISINOPRIL
  6. TIMOLOL [Concomitant]
     Active Substance: TIMOLOL
  7. HYDROCHLOROTHIAZIDE. [Concomitant]
     Active Substance: HYDROCHLOROTHIAZIDE

REACTIONS (5)
  - Vomiting [Unknown]
  - Blood pressure decreased [Recovered/Resolved]
  - Drug ineffective [Unknown]
  - Malaise [Unknown]
  - Back disorder [Unknown]

NARRATIVE: CASE EVENT DATE: 20140506
